FAERS Safety Report 16730611 (Version 2)
Quarter: 2019Q4

REPORT INFORMATION
  Report Type: Spontaneous
  Country: US (occurrence: US)
  Receive Date: 20190822
  Receipt Date: 20191104
  Transmission Date: 20200122
  Serious: No
  Sender: FDA-Public Use
  Company Number: US-JNJFOC-20190814468

PATIENT
  Sex: Female

DRUGS (1)
  1. ERDAFITINIB TABLET [Suspect]
     Active Substance: ERDAFITINIB
     Indication: PRODUCT USED FOR UNKNOWN INDICATION
     Dosage: 2 TABLETS ONCE DAILY
     Route: 048
     Dates: end: 201907

REACTIONS (1)
  - Diarrhoea [Unknown]
